FAERS Safety Report 9251686 (Version 1)
Quarter: 2013Q1

REPORT INFORMATION
  Report Type: Spontaneous
  Country: US (occurrence: None)
  Receive Date: 20130305
  Receipt Date: 20130305
  Transmission Date: 20140127
  Serious: Yes (Other)
  Sender: FDA-Public Use
  Company Number: 163-21880-12071702

PATIENT
  Age: 61 Year
  Sex: Female
  Weight: 59.4 kg

DRUGS (17)
  1. REVLIMID [Suspect]
     Indication: PLASMA CELL MYELOMA
     Dosage: 28 IN 28 D
     Route: 048
     Dates: start: 20080227
  2. VITAMIN D (ERGOCALCIFEROL) [Concomitant]
  3. ZOLPIDEM (ZOLPIDEM) [Concomitant]
  4. LEVOTHYROXINE (LEVOTHYROXINE) [Concomitant]
  5. VITAMINS [Concomitant]
  6. BACTRIM DS (BACTRIM) [Concomitant]
  7. TYLENOL (PARACETAMOL) [Concomitant]
  8. DEXAMETHASONE (DEXAMETHASONE) [Concomitant]
  9. FLUCONAZOLE (FLUCONAZOLE) [Concomitant]
  10. ACYCLOVIR (ACICLOVIR) (ACICLOVIR) [Concomitant]
  11. SENNA [Concomitant]
  12. CLARITIN (LORATADINE) [Concomitant]
  13. VITAMIN C [Concomitant]
  14. VITAMIN E (TOCOPHEROL) [Concomitant]
  15. OMEPRAZOLE (OMEPRAZOLE) [Concomitant]
  16. CALCIUM (CALCIUM) [Concomitant]
  17. ASPIRIN (ACETYLSALICYLIC ACID) [Concomitant]

REACTIONS (1)
  - Diarrhoea [None]
